FAERS Safety Report 8133056-3 (Version None)
Quarter: 2012Q1

REPORT INFORMATION
  Report Type: 
  Country: None (occurrence: None)
  Receive Date: 20120213
  Receipt Date: 20120130
  Transmission Date: 20120608
  Serious: Yes (Hospitalization)
  Sender: FDA-Public Use
  Company Number: PHHY2010BR29073

PATIENT
  Sex: Female
  Weight: 57.3 kg

DRUGS (5)
  1. NILOTINIB [Suspect]
     Indication: CHRONIC MYELOID LEUKAEMIA
     Dosage: 800 MG, UNK
     Route: 048
     Dates: start: 20100111, end: 20100203
  2. NO TREATMENT RECEIVED [Suspect]
  3. NYSTATIN [Concomitant]
     Dosage: UNK
     Dates: start: 20100203
  4. CLINDAMYCIN [Concomitant]
     Dosage: 600 MG, TID
     Route: 048
     Dates: start: 20100203
  5. FLUCONAZOLE [Concomitant]
     Dosage: 200 MG, QD
     Route: 048
     Dates: start: 20100203

REACTIONS (6)
  - FEBRILE NEUTROPENIA [None]
  - OEDEMA GENITAL [None]
  - FURUNCLE [None]
  - PAIN [None]
  - PYREXIA [None]
  - CANDIDIASIS [None]
